FAERS Safety Report 7395852-X (Version None)
Quarter: 2011Q2

REPORT INFORMATION
  Report Type: 
  Country: None (occurrence: None)
  Receive Date: 20110405
  Receipt Date: 20110328
  Transmission Date: 20111010
  Serious: Yes (Other)
  Sender: FDA-Public Use
  Company Number: DE-AMGEN-DEUSP2011015854

PATIENT
  Sex: Female

DRUGS (1)
  1. ARANESP [Suspect]
     Indication: MYELODYSPLASTIC SYNDROME
     Dosage: 150 A?G, UNK

REACTIONS (4)
  - HAEMORRHAGE [None]
  - FEMUR FRACTURE [None]
  - BLOOD ERYTHROPOIETIN INCREASED [None]
  - THERAPEUTIC RESPONSE DECREASED [None]
